FAERS Safety Report 5650656-0 (Version None)
Quarter: 2008Q1

REPORT INFORMATION
  Report Type: 
  Country: None (occurrence: None)
  Receive Date: 20080305
  Receipt Date: 20080229
  Transmission Date: 20080703
  Serious: Yes (Other)
  Sender: FDA-Public Use
  Company Number: PHEH2008US02086

PATIENT
  Age: 54 Year
  Sex: Male
  Weight: 128.34 kg

DRUGS (6)
  1. METOLAZONE [Concomitant]
  2. NICARDIPINE HYDROCHLORIDE [Concomitant]
  3. ENALAPRIL MALEATE [Concomitant]
  4. COREG [Concomitant]
  5. TEKTURNA [Suspect]
     Indication: MALIGNANT HYPERTENSION
     Dosage: 150 MG, QD
     Route: 048
     Dates: start: 20070921, end: 20071014
  6. TEKTURNA [Suspect]
     Dosage: 300 MG, QD
     Dates: start: 20071015, end: 20080211

REACTIONS (3)
  - BLOOD CREATININE INCREASED [None]
  - CREATININE RENAL CLEARANCE DECREASED [None]
  - HYPOKALAEMIA [None]
